FAERS Safety Report 7404401-9 (Version None)
Quarter: 2011Q2

REPORT INFORMATION
  Report Type: 
  Country: None (occurrence: None)
  Receive Date: 20110408
  Receipt Date: 20110331
  Transmission Date: 20111010
  Serious: Yes (Other)
  Sender: FDA-Public Use
  Company Number: MX-GILEAD-2011-0037689

PATIENT
  Age: 19 Year
  Sex: Male
  Weight: 49.2 kg

DRUGS (4)
  1. TRUVADA [Suspect]
     Indication: HIV INFECTION
     Dates: start: 20101006, end: 20110317
  2. RITONAVIR [Concomitant]
     Dates: start: 20101006
  3. ITRACONAZOLE [Concomitant]
     Dates: start: 20101006, end: 20101106
  4. ZIDOVUDINE [Concomitant]
     Dates: start: 20101006

REACTIONS (6)
  - NAUSEA [None]
  - ANAEMIA [None]
  - RENAL FAILURE [None]
  - EYELID OEDEMA [None]
  - OEDEMA PERIPHERAL [None]
  - URINE OUTPUT DECREASED [None]
